FAERS Safety Report 21870652 (Version 2)
Quarter: 2023Q1

REPORT INFORMATION
  Report Type: Report from Study
  Country: CA (occurrence: CA)
  Receive Date: 20230117
  Receipt Date: 20230209
  Transmission Date: 20230418
  Serious: Yes (Other)
  Sender: FDA-Public Use
  Company Number: CA-JNJFOC-20230125218

PATIENT
  Age: 12 Year
  Sex: Male
  Weight: 36 kg

DRUGS (1)
  1. REMICADE [Suspect]
     Active Substance: INFLIXIMAB
     Indication: Crohn^s disease
     Dosage: PRODUCT EXPIRY DATE:30-JUL-2025, REMICADE HAD BEEN DISCONTINUED.
     Route: 041
     Dates: start: 20211228, end: 20230111

REACTIONS (1)
  - Infusion related reaction [Recovered/Resolved]

NARRATIVE: CASE EVENT DATE: 20230111
